FAERS Safety Report 7438303-9 (Version None)
Quarter: 2011Q2

REPORT INFORMATION
  Report Type: 
  Country: None (occurrence: None)
  Receive Date: 20110426
  Receipt Date: 20110421
  Transmission Date: 20111010
  Serious: Yes (Hospitalization)
  Sender: FDA-Public Use
  Company Number: US-PFIZER INC-2011031616

PATIENT
  Sex: Female
  Weight: 91 kg

DRUGS (34)
  1. BUDESONIDE [Concomitant]
     Indication: ASTHMA
     Dosage: UNK
  2. SPIRONOLACTONE [Concomitant]
     Indication: CARDIOMYOPATHY
     Dosage: 25 MG, 1X/DAY
  3. METAXALONE [Concomitant]
     Indication: MUSCLE SPASMS
     Dosage: 800 MG, 2X/DAY
  4. CYMBALTA [Concomitant]
     Indication: FIBROMYALGIA
     Dosage: 60 MG, 2X/DAY
     Route: 048
  5. REGLAN [Concomitant]
     Dosage: 10 MG, AS NEEDED
     Route: 048
  6. ADVAIR DISKUS 100/50 [Concomitant]
     Indication: ASTHMA
     Dosage: UNK
  7. PRILOSEC [Concomitant]
     Indication: ULCER
     Dosage: 40 MG, UNK
  8. CHANTIX [Suspect]
     Indication: SMOKING CESSATION THERAPY
     Dosage: 1 MG, 1X/DAY
     Route: 048
     Dates: start: 20100101
  9. NICOTINE [Concomitant]
     Dosage: 40 MG, UNK
  10. DILAUDID [Concomitant]
     Indication: PAIN
     Dosage: 4 MG, 1X/DAY
  11. MORPHINE [Concomitant]
     Indication: PAIN
     Dosage: 30 MG, 2X/DAY
  12. IMITREX [Concomitant]
     Dosage: 100 MG, AS NEEDED
     Route: 048
  13. VOLTAREN [Concomitant]
     Indication: INFLAMMATION
     Dosage: UNK
     Route: 061
  14. DOXEPIN [Concomitant]
     Indication: PRURITUS
     Dosage: 50MG IN THE MORNING AND 100 MG AT NIGHT
  15. CHANTIX [Suspect]
     Dosage: UNK
     Route: 048
     Dates: start: 20110223
  16. PREDNISONE [Concomitant]
     Indication: INFLAMMATION
  17. VALIUM [Concomitant]
     Indication: SLEEP DISORDER
     Dosage: 10 MG, 3X/DAY
     Route: 048
  18. MONTELUKAST SODIUM [Concomitant]
     Dosage: 10 MG, 1X/DAY
  19. CELEXA [Concomitant]
     Dosage: 20 MG, 1X/DAY
     Route: 048
  20. LYRICA [Concomitant]
     Indication: FIBROMYALGIA
     Dosage: 100 MG, 1X/DAY
     Route: 048
  21. MS CONTIN [Concomitant]
     Indication: PAIN
     Dosage: 60 MG, 1X/DAY
  22. CHANTIX [Suspect]
     Dosage: 0.5 MG, 1X/DAY
     Route: 048
     Dates: start: 20110204, end: 20110201
  23. VICODIN [Concomitant]
     Indication: PAIN
     Dosage: 5/500 MG ONE TO TWO TABLETS EVERY 4-6 HOURS DAILY
     Route: 048
  24. LASIX [Concomitant]
     Dosage: 40 MG, 1X/DAY
     Route: 048
  25. RESTORIL [Concomitant]
     Dosage: 50 MG, AS NEEDED
     Route: 048
  26. ALBUTEROL SULFATE [Concomitant]
     Indication: ASTHMA
     Dosage: UNK
  27. PREDNISONE [Concomitant]
     Indication: VIRAL INFECTION
  28. POTASSIUM [Concomitant]
     Dosage: 8 MEQ, 1X/DAY
  29. SIMVASTATIN [Concomitant]
     Indication: BLOOD CHOLESTEROL ABNORMAL
     Dosage: 40 MG, 1X/DAY
  30. PREDNISONE [Concomitant]
     Indication: SINUSITIS
     Dosage: 40 MG, UNK
     Dates: start: 20110303, end: 20110304
  31. LUMIGAN [Concomitant]
     Indication: GLAUCOMA
     Dosage: 1 GTT, 1X/DAY
     Route: 047
  32. VERAPAMIL [Concomitant]
     Indication: CARDIOMYOPATHY
     Dosage: 120 MG, 1X/DAY
  33. SEROQUEL [Concomitant]
     Indication: SLEEP DISORDER
     Dosage: 100 MG, 1X/DAY
     Route: 048
  34. DIAZEPAM [Concomitant]
     Indication: SLEEP DISORDER

REACTIONS (2)
  - BLINDNESS TRANSIENT [None]
  - LOSS OF CONSCIOUSNESS [None]
